FAERS Safety Report 9107138 (Version 1)
Quarter: 2013Q1

REPORT INFORMATION
  Report Type: Spontaneous
  Country: IT (occurrence: IT)
  Receive Date: 20130221
  Receipt Date: 20130221
  Transmission Date: 20140127
  Serious: Yes (Hospitalization)
  Sender: FDA-Public Use
  Company Number: IT-B.I. PHARMACEUTICALS,INC./RIDGEFIELD-2013-IT-00110IT

PATIENT
  Age: 88 Year
  Sex: Male

DRUGS (4)
  1. MIRAPEXIN [Suspect]
     Indication: PARKINSON^S DISEASE
     Dosage: 2.1 MG
     Route: 048
     Dates: start: 20020101
  2. PERIDON [Suspect]
     Indication: VOMITING
     Dosage: 10 MG
     Route: 048
     Dates: start: 20020101
  3. DOBETIN [Concomitant]
     Dates: start: 20020101
  4. CLODY [Concomitant]
     Dosage: STRENGTH: 100MG /3.3ML
     Route: 030
     Dates: start: 20090501

REACTIONS (1)
  - Neuroendocrine carcinoma [Not Recovered/Not Resolved]
